FAERS Safety Report 25988416 (Version 2)
Quarter: 2025Q4

REPORT INFORMATION
  Report Type: Spontaneous
  Country: EU (occurrence: EU)
  Receive Date: 20251103
  Receipt Date: 20251110
  Transmission Date: 20260118
  Serious: Yes (Death, Other)
  Sender: ASTELLAS
  Company Number: EU-ASTELLAS-2025-AER-060732

PATIENT
  Age: 23 Year
  Sex: Male

DRUGS (9)
  1. ISAVUCONAZOLE [Suspect]
     Active Substance: ISAVUCONAZOLE
     Indication: Antifungal treatment
     Route: 065
  2. ISAVUCONAZOLE [Suspect]
     Active Substance: ISAVUCONAZOLE
     Indication: Fungal infection
  3. AMPHOTERICIN B [Suspect]
     Active Substance: AMPHOTERICIN B
     Indication: Fungal infection
     Dosage: SYSTEMIC
     Route: 065
  4. AMPHOTERICIN B [Suspect]
     Active Substance: AMPHOTERICIN B
     Indication: Antifungal treatment
     Route: 029
  5. CASPOFUNGIN [Suspect]
     Active Substance: CASPOFUNGIN
     Indication: Fungal infection
     Route: 065
  6. CASPOFUNGIN [Suspect]
     Active Substance: CASPOFUNGIN
     Indication: Antifungal treatment
  7. OLOROFIM [Suspect]
     Active Substance: OLOROFIM
     Indication: Fungal infection
     Route: 065
  8. OLOROFIM [Suspect]
     Active Substance: OLOROFIM
     Indication: Antifungal treatment
  9. VANCOMYCIN [Concomitant]
     Active Substance: VANCOMYCIN
     Indication: Staphylococcal infection
     Route: 065

REACTIONS (5)
  - Leukaemia recurrent [Fatal]
  - Acid-base balance disorder mixed [Recovering/Resolving]
  - Renal tubular disorder [Unknown]
  - Polyuria [Unknown]
  - Treatment failure [Not Recovered/Not Resolved]
